FAERS Safety Report 8461202-0 (Version None)
Quarter: 2012Q2

REPORT INFORMATION
  Report Type: 
  Country: None (occurrence: None)
  Receive Date: 20120618
  Receipt Date: 20120618
  Transmission Date: 20120825
  Serious: No
  Sender: FDA-Public Use
  Company Number: None

PATIENT
  Age: 53 Year
  Sex: Female
  Weight: 78.9259 kg

DRUGS (1)
  1. OXYBUTYNIN [Suspect]
     Indication: BLADDER DISORDER
     Dosage: 1 TABLET 2/DAY PO
     Route: 048
     Dates: start: 20120511, end: 20120523

REACTIONS (4)
  - DRY MOUTH [None]
  - DYSPEPSIA [None]
  - DYSPNOEA [None]
  - THIRST [None]
